FAERS Safety Report 9213271 (Version 1)
Quarter: 2013Q2

REPORT INFORMATION
  Report Type: Spontaneous
  Country: US (occurrence: US)
  Receive Date: 20130405
  Receipt Date: 20130405
  Transmission Date: 20140414
  Serious: Yes (Other)
  Sender: FDA-Public Use
  Company Number: US-CELGENEUS-163-50794-13034378

PATIENT
  Sex: Male
  Weight: 87 kg

DRUGS (4)
  1. VIDAZA [Suspect]
     Indication: MYELODYSPLASTIC SYNDROME
     Route: 065
     Dates: start: 201201
  2. CARVEDILOL [Concomitant]
     Indication: EJECTION FRACTION DECREASED
     Route: 065
  3. LISINOPRIL [Concomitant]
     Indication: EJECTION FRACTION DECREASED
     Route: 065
  4. ACYCLOVIR [Concomitant]
     Indication: PRODUCT USED FOR UNKNOWN INDICATION
     Route: 065

REACTIONS (1)
  - Ejection fraction decreased [Not Recovered/Not Resolved]
